FAERS Safety Report 20096695 (Version 1)
Quarter: 2021Q4

REPORT INFORMATION
  Report Type: Other
  Country: RU (occurrence: RU)
  Receive Date: 20211122
  Receipt Date: 20211122
  Transmission Date: 20220303
  Serious: Yes (Other)
  Sender: FDA-Public Use
  Company Number: RU-COLLEGIUM PHARMACEUTICAL, INC.-2021CGM01209

PATIENT
  Age: 45 Year
  Sex: Female
  Weight: 45 kg

DRUGS (2)
  1. TAPENTADOL [Suspect]
     Active Substance: TAPENTADOL
     Indication: Sacral pain
     Dosage: 100 MG, 1X/DAY
     Route: 048
     Dates: start: 20210203, end: 20210206
  2. PREGABALIN [Concomitant]
     Active Substance: PREGABALIN
     Dosage: UNK
     Dates: start: 20210203, end: 20210206

REACTIONS (3)
  - Urinary retention [Recovering/Resolving]
  - Urinary tract pain [Recovering/Resolving]
  - Dysuria [Recovering/Resolving]

NARRATIVE: CASE EVENT DATE: 20210204
